FAERS Safety Report 5702100-2 (Version None)
Quarter: 2008Q2

REPORT INFORMATION
  Report Type: 
  Country: None (occurrence: None)
  Receive Date: 20080411
  Receipt Date: 20070910
  Transmission Date: 20081010
  Serious: No
  Sender: FDA-Public Use
  Company Number: US-ABBOTT-07P-163-0416888-00

PATIENT
  Sex: Female
  Weight: 62.652 kg

DRUGS (4)
  1. DEPAKOTE [Suspect]
     Indication: CONVULSION
     Route: 048
     Dates: start: 19900101
  2. DEPAKOTE [Suspect]
     Route: 048
     Dates: end: 20070701
  3. DEPAKOTE [Suspect]
     Route: 048
     Dates: start: 20070701
  4. VITAMINS [Concomitant]
     Indication: DRUG USE FOR UNKNOWN INDICATION

REACTIONS (3)
  - ALOPECIA [None]
  - BRUXISM [None]
  - TOOTH LOSS [None]
